FAERS Safety Report 4869777-5 (Version None)
Quarter: 2005Q4

REPORT INFORMATION
  Report Type: 
  Country: None (occurrence: None)
  Receive Date: 20051223
  Receipt Date: 20051207
  Transmission Date: 20060501
  Serious: Yes (Hospitalization)
  Sender: FDA-Public Use
  Company Number: TRP_0657_2005

PATIENT
  Age: 48 Year
  Sex: Female
  Weight: 63.5036 kg

DRUGS (4)
  1. RIBASPHERE [Suspect]
     Indication: HEPATITIS C
     Dosage: 1000 MG QDAY PO
     Route: 048
     Dates: start: 20050609
  2. PEG-INTRON [Suspect]
     Indication: HEPATITIS C
     Dosage: 120 MCG QWK SC
     Route: 058
     Dates: start: 20050609
  3. FLEXERIL [Concomitant]
  4. ACTIGALL [Concomitant]

REACTIONS (5)
  - FLANK PAIN [None]
  - HAEMORRHAGE [None]
  - HEPATIC CYST [None]
  - HYPOVOLAEMIA [None]
  - PLEURITIC PAIN [None]
